FAERS Safety Report 16044185 (Version 1)
Quarter: 2019Q1

REPORT INFORMATION
  Report Type: Other
  Country: ES (occurrence: ES)
  Receive Date: 20190306
  Receipt Date: 20190306
  Transmission Date: 20190418
  Serious: Yes (Hospitalization)
  Sender: FDA-Public Use
  Company Number: ES-COLLEGIUM PHARMACEUTICAL, INC.-ES-2019COL000275

PATIENT
  Age: 95 Year
  Sex: Female

DRUGS (12)
  1. LYRICA [Concomitant]
     Active Substance: PREGABALIN
     Indication: PRODUCT USED FOR UNKNOWN INDICATION
     Dosage: UNK
  2. FOSFOMICINA                        /00552501/ [Concomitant]
     Active Substance: FOSFOMYCIN
     Indication: RESPIRATORY TRACT INFECTION
     Dosage: UNK
     Dates: start: 20190109, end: 20190111
  3. VALSARTAN. [Concomitant]
     Active Substance: VALSARTAN
     Indication: PRODUCT USED FOR UNKNOWN INDICATION
     Dosage: UNK
  4. VERSATIS [Concomitant]
     Active Substance: LIDOCAINE
     Indication: SCIATICA
     Dosage: UNK
  5. FLUIDASA (MEPYRAMINE THEOPHYLLINE ACETATE) [Suspect]
     Active Substance: MEPIFYLLINE
     Indication: RESPIRATORY TRACT INFECTION
     Dosage: 5 ML, EVERY 8 HRS
     Route: 048
     Dates: start: 20190104, end: 20190110
  6. LEVOFLOXACINO                      /01278901/ [Concomitant]
     Indication: RESPIRATORY TRACT INFECTION
     Dosage: UNK
     Dates: start: 20190104, end: 20190110
  7. FUROSEMIDA                         /00032601/ [Concomitant]
     Active Substance: FUROSEMIDE
     Indication: PRODUCT USED FOR UNKNOWN INDICATION
     Dosage: UNK
  8. PANTOPRAZOL                        /01263201/ [Concomitant]
     Active Substance: PANTOPRAZOLE
     Indication: PRODUCT USED FOR UNKNOWN INDICATION
     Dosage: UNK
  9. METAMIZOL                          /06276701/ [Concomitant]
     Active Substance: METAMIZOLE
     Indication: SCIATICA
     Dosage: UNK
  10. TAPENTADOL EXTENDED RELEASE [Suspect]
     Active Substance: TAPENTADOL
     Indication: SCIATICA
     Dosage: 50 MG, EVERY 12 HRS
     Route: 048
     Dates: start: 20140626
  11. TRAMADOL HYDROCHLORIDE. [Suspect]
     Active Substance: TRAMADOL HYDROCHLORIDE
     Indication: SCIATICA
     Dosage: 150 MG, EVERY 12 HRS
     Route: 048
     Dates: start: 20180308, end: 20190110
  12. ATORVASTATINA                      /01326101/ [Concomitant]
     Active Substance: ATORVASTATIN
     Indication: PRODUCT USED FOR UNKNOWN INDICATION
     Dosage: UNK

REACTIONS (2)
  - Drug interaction [Recovered/Resolved]
  - Coma [Recovered/Resolved]

NARRATIVE: CASE EVENT DATE: 20190110
